FAERS Safety Report 10173954 (Version 1)
Quarter: 2014Q2

REPORT INFORMATION
  Report Type: Spontaneous
  Country: US (occurrence: None)
  Receive Date: 20140416
  Receipt Date: 20140416
  Transmission Date: 20141212
  Serious: Yes (Hospitalization, Other)
  Sender: FDA-Public Use
  Company Number: 163-POMAL-13124847

PATIENT
  Age: 53 Year
  Sex: Female
  Weight: 58.1 kg

DRUGS (7)
  1. POMALYST [Suspect]
     Indication: PLASMA CELL MYELOMA
     Dosage: 4 MG, 21 IN 28 D, PO
     Route: 048
     Dates: start: 20131120
  2. CYMBALTA [Concomitant]
  3. DEXAMETHASONE (DEXAMETHASONE) [Concomitant]
  4. SYNTHROID (LEVOTHYROXIDE SODIUM) [Concomitant]
  5. NEURONTIN (GABAPENTIN) [Concomitant]
  6. OXYCODONE HCL (OXYCODONE HYDROCHLORIDE) [Concomitant]
  7. FENTANYL (FENTANYL) [Concomitant]

REACTIONS (8)
  - Hypersensitivity [None]
  - Renal failure [None]
  - Thrombosis [None]
  - Petechiae [None]
  - Memory impairment [None]
  - Epistaxis [None]
  - Neuropathy peripheral [None]
  - Laceration [None]
